FAERS Safety Report 7909803-X (Version None)
Quarter: 2011Q4

REPORT INFORMATION
  Report Type: 
  Country: None (occurrence: None)
  Receive Date: 20111111
  Receipt Date: 20111031
  Transmission Date: 20120403
  Serious: Yes (Hospitalization)
  Sender: FDA-Public Use
  Company Number: JP-NAPPMUNDI-MAG-2011-0001785

PATIENT
  Sex: Female

DRUGS (8)
  1. RIZE                               /00624801/ [Concomitant]
     Indication: ANXIETY
     Dosage: UNK
     Route: 048
     Dates: start: 20110701
  2. FENTANYL-100 [Suspect]
     Indication: CANCER PAIN
     Dosage: 8.4 MG, UNK
     Route: 062
     Dates: start: 20110701, end: 20111011
  3. MUCOSTA [Concomitant]
     Indication: GASTROINTESTINAL MUCOSAL DISORDER
     Dosage: 300 MG, DAILY
     Route: 048
     Dates: start: 20110701
  4. MAGMITT [Concomitant]
     Indication: CONSTIPATION
     Dosage: 1500 MG, DAILY
     Route: 048
  5. OXYCODONE HCL [Suspect]
     Indication: CANCER PAIN
     Dosage: 50 MG, PRN
     Route: 048
     Dates: start: 20110201, end: 20111011
  6. ESTRANA [Concomitant]
     Indication: MENOPAUSAL SYMPTOMS
     Dosage: UNK
     Dates: start: 20110701
  7. ZOLPIDEM [Concomitant]
     Indication: INSOMNIA
     Dosage: 10 MG, DAILY
     Route: 048
  8. OXYCODONE HCL [Suspect]
     Dosage: 10 MG, PRN
     Route: 048
     Dates: start: 20111004, end: 20111011

REACTIONS (1)
  - INTESTINAL OBSTRUCTION [None]
